FAERS Safety Report 4319739-1 (Version None)
Quarter: 2004Q1

REPORT INFORMATION
  Report Type: 
  Country: None (occurrence: None)
  Receive Date: 20040319
  Receipt Date: 20040105
  Transmission Date: 20041129
  Serious: Yes (Death, Hospitalization)
  Sender: FDA-Public Use
  Company Number: US-GLAXOSMITHKLINE-A0493776A

PATIENT
  Age: 92 Year
  Sex: Female

DRUGS (5)
  1. LANOXIN [Suspect]
     Dosage: .25MG PER DAY
     Route: 048
  2. NORVASC [Concomitant]
     Dosage: 10MG PER DAY
     Route: 042
     Dates: start: 20020927
  3. NAPROXEN [Concomitant]
     Dosage: 250MG TWICE PER DAY
     Dates: start: 20020927
  4. LOPRESSOR [Concomitant]
     Dosage: 50MG PER DAY
     Dates: start: 20020927
  5. IMDUR [Concomitant]
     Dosage: 120MG PER DAY
     Dates: start: 20020917

REACTIONS (4)
  - DEATH [None]
  - DYSPNOEA [None]
  - MEDICATION ERROR [None]
  - THERAPEUTIC AGENT TOXICITY [None]
